FAERS Safety Report 5592657-7 (Version None)
Quarter: 2008Q1

REPORT INFORMATION
  Report Type: 
  Country: None (occurrence: None)
  Receive Date: 20080115
  Receipt Date: 20080108
  Transmission Date: 20080703
  Serious: Yes (Hospitalization)
  Sender: FDA-Public Use
  Company Number: AR-BOEHRINGER INGELHEIM PHARMACEUTICALS, INC.-2004-UK-01159UK

PATIENT
  Sex: Male
  Weight: 82 kg

DRUGS (7)
  1. AGGRENOX [Suspect]
     Indication: CEREBROVASCULAR ACCIDENT PROPHYLAXIS
     Route: 048
     Dates: start: 20040720, end: 20040930
  2. AGGRENOX [Suspect]
     Route: 048
     Dates: start: 20041111, end: 20051207
  3. MICARDIS [Suspect]
     Indication: CEREBROVASCULAR ACCIDENT PROPHYLAXIS
     Route: 048
     Dates: start: 20040720, end: 20040824
  4. CLOPIDOGREL [Suspect]
     Indication: CEREBROVASCULAR ACCIDENT PROPHYLAXIS
     Route: 048
     Dates: start: 20040720, end: 20040930
  5. CLOPIDOGREL [Suspect]
     Route: 048
     Dates: start: 20041111, end: 20051207
  6. ENALAPRIL MALEATE [Suspect]
     Route: 048
     Dates: start: 20040522
  7. LOSARTAN POTASSIUM [Concomitant]
     Indication: NEPHROPATHY
     Route: 048
     Dates: start: 20050104

REACTIONS (2)
  - CREATININE RENAL CLEARANCE DECREASED [None]
  - PROTEINURIA [None]
